FAERS Safety Report 16032166 (Version 1)
Quarter: 2019Q1

REPORT INFORMATION
  Report Type: Spontaneous
  Country: TR (occurrence: TR)
  Receive Date: 20190304
  Receipt Date: 20190304
  Transmission Date: 20190418
  Serious: Yes (Hospitalization)
  Sender: FDA-Public Use
  Company Number: TR-NOVOPROD-649207

PATIENT
  Age: 14 Year
  Sex: Female
  Weight: 46 kg

DRUGS (2)
  1. NORDITROPIN [Suspect]
     Active Substance: SOMATROPIN
     Indication: GROWTH HORMONE DEFICIENCY
     Dosage: 1.4 MG, QD
     Route: 058
     Dates: start: 20151231, end: 20181226
  2. ESTROFEM (ESTRADIOL HEMIHYDRATE) [Suspect]
     Active Substance: ESTRADIOL HEMIHYDRATE
     Indication: TURNER^S SYNDROME
     Dosage: 2 MG, QD
     Route: 048
     Dates: start: 20180120, end: 20181225

REACTIONS (2)
  - Off label use [Unknown]
  - Ovarian cyst [Not Recovered/Not Resolved]

NARRATIVE: CASE EVENT DATE: 20180120
